FAERS Safety Report 6267556-8 (Version None)
Quarter: 2009Q3

REPORT INFORMATION
  Report Type: 
  Country: None (occurrence: None)
  Receive Date: 20090714
  Receipt Date: 20090708
  Transmission Date: 20100115
  Serious: Yes (Hospitalization, Other)
  Sender: FDA-Public Use
  Company Number: US-AMGEN-QUU354847

PATIENT
  Sex: Female

DRUGS (1)
  1. ENBREL [Suspect]
     Indication: RHEUMATOID ARTHRITIS
     Route: 058

REACTIONS (7)
  - ABDOMINAL DISTENSION [None]
  - ARTHRALGIA [None]
  - CHOLECYSTECTOMY [None]
  - GASTROINTESTINAL INFECTION [None]
  - HEPATIC PAIN [None]
  - JOINT SWELLING [None]
  - PAIN [None]
